FAERS Safety Report 4327504-4 (Version None)
Quarter: 2004Q1

REPORT INFORMATION
  Report Type: 
  Country: None (occurrence: None)
  Receive Date: 20040325
  Receipt Date: 20040315
  Transmission Date: 20041129
  Serious: No
  Sender: FDA-Public Use
  Company Number: 2004GB00639

PATIENT
  Age: 72 Year
  Sex: Male
  Weight: 87 kg

DRUGS (4)
  1. CRESTOR [Suspect]
     Indication: HYPERLIPIDAEMIA
     Dosage: 10 MG QD PO
     Route: 048
     Dates: start: 20031208, end: 20040220
  2. FRUSEMIDE [Concomitant]
  3. RANITIDINE [Concomitant]
  4. TELMISARTAN [Concomitant]

REACTIONS (5)
  - BLOOD CREATINE PHOSPHOKINASE INCREASED [None]
  - EYE IRRITATION [None]
  - HOT FLUSH [None]
  - PAIN [None]
  - PARAESTHESIA [None]
